FAERS Safety Report 26204368 (Version 1)
Quarter: 2025Q4

REPORT INFORMATION
  Report Type: Report from Study
  Country: US (occurrence: US)
  Receive Date: 20251226
  Receipt Date: 20251226
  Transmission Date: 20260118
  Serious: Yes (Hospitalization)
  Sender: ASTELLAS
  Company Number: US-ASTELLAS-2025-AER-065228

PATIENT
  Age: 69 Year
  Sex: Male

DRUGS (2)
  1. CRESEMBA [Suspect]
     Active Substance: ISAVUCONAZONIUM SULFATE
     Indication: Aspergillus infection
     Dosage: 2X186MG CAPSULES DAILY
     Route: 048
     Dates: start: 20251031, end: 202511
  2. CRESEMBA [Suspect]
     Active Substance: ISAVUCONAZONIUM SULFATE
     Indication: Mucormycosis

REACTIONS (2)
  - Nausea [Unknown]
  - Illness [Unknown]

NARRATIVE: CASE EVENT DATE: 20251101
